FAERS Safety Report 9537367 (Version 1)
Quarter: 2013Q3

REPORT INFORMATION
  Report Type: Report from Study
  Country: BR (occurrence: BR)
  Receive Date: 20130919
  Receipt Date: 20130919
  Transmission Date: 20140515
  Serious: Yes (Other)
  Sender: FDA-Public Use
  Company Number: PHHY2013BR103720

PATIENT
  Sex: Female
  Weight: 57 kg

DRUGS (13)
  1. EXELON PATCH [Suspect]
     Indication: DEMENTIA ALZHEIMER^S TYPE
     Dosage: 9.5 MG, DAILY
     Route: 062
     Dates: end: 20130914
  2. EXELON PATCH [Suspect]
     Dosage: 4.6 MG UNK
     Route: 062
     Dates: start: 20130915
  3. VICOG [Suspect]
     Indication: PERIPHERAL VASCULAR DISORDER
     Dosage: 3 DF DAILY
     Route: 048
  4. PENTOX [Suspect]
     Indication: PERIPHERAL VASCULAR DISORDER
     Dosage: 2 DF DAILY
     Route: 048
  5. OMEPRAZOLE [Concomitant]
     Indication: PROPHYLAXIS
     Dosage: 1 DF DAILY
     Route: 048
  6. CEWIN [Concomitant]
     Indication: INFLUENZA
     Dosage: 1 DF DAILY
     Route: 048
  7. RESPIDON [Concomitant]
     Dosage: 0.5 DF DAILY
     Route: 048
  8. OSTEONUTRI [Concomitant]
     Indication: BONE DISORDER
     Dosage: 1 DF DAILY
     Route: 048
  9. ASPIRINE [Concomitant]
     Indication: PROPHYLAXIS
     Dosage: 1 DF DAILY
     Route: 048
  10. DEPURA [Concomitant]
     Dosage: 35 DROPS ONCE PER WEEK
  11. CLOPAM [Concomitant]
     Indication: ANXIETY
     Dosage: 1 DF DAILY
     Route: 048
  12. CRESTOR [Concomitant]
     Indication: BLOOD CHOLESTEROL INCREASED
     Dosage: 1 DF DAILY
     Route: 048
  13. RAZAPINA [Concomitant]
     Dosage: 1 DF DAILY
     Route: 048

REACTIONS (2)
  - Brain malformation [Not Recovered/Not Resolved]
  - Weight decreased [Not Recovered/Not Resolved]
